FAERS Safety Report 18464059 (Version 1)
Quarter: 2020Q4

REPORT INFORMATION
  Report Type: Report from Study
  Country: FR (occurrence: FR)
  Receive Date: 20201104
  Receipt Date: 20201104
  Transmission Date: 20210114
  Serious: Yes (Other)
  Sender: FDA-Public Use
  Company Number: FR-JAZZ-2019-FR-016201

PATIENT

DRUGS (4)
  1. URSODEOXYCHOLIC ACID [Concomitant]
     Active Substance: URSODIOL
     Indication: PROPHYLAXIS
  2. SODIUM HEPARIN [Concomitant]
     Active Substance: HEPARIN SODIUM
     Indication: PROPHYLAXIS
  3. DEFITELIO [Suspect]
     Active Substance: DEFIBROTIDE SODIUM
     Indication: PROPHYLAXIS
     Dosage: UNKNOWN DOSAGE
  4. SODIUM [Concomitant]
     Active Substance: SODIUM
     Indication: PROPHYLAXIS

REACTIONS (2)
  - Intentional product use issue [Unknown]
  - Venoocclusive disease [Unknown]
